FAERS Safety Report 21639375 (Version 2)
Quarter: 2023Q1

REPORT INFORMATION
  Report Type: Report from Study
  Country: US (occurrence: US)
  Receive Date: 20221124
  Receipt Date: 20230113
  Transmission Date: 20230417
  Serious: Yes (Other)
  Sender: FDA-Public Use
  Company Number: US-TEVA-2022-US-2827446

PATIENT
  Age: 16 Year
  Sex: Female

DRUGS (1)
  1. CLARAVIS [Suspect]
     Active Substance: ISOTRETINOIN
     Indication: Product used for unknown indication
     Dosage: 20 MILLIGRAM DAILY; STRENGTH: 20 MG
     Dates: start: 202210, end: 20221110

REACTIONS (1)
  - Unintended pregnancy [Unknown]

NARRATIVE: CASE EVENT DATE: 20220928
